FAERS Safety Report 12587067 (Version 3)
Quarter: 2016Q3

REPORT INFORMATION
  Report Type: Spontaneous
  Country: CZ (occurrence: CZ)
  Receive Date: 20160725
  Receipt Date: 20160914
  Transmission Date: 20161109
  Serious: Yes (Death)
  Sender: FDA-Public Use
  Company Number: CZ-ROCHE-1800982

PATIENT
  Sex: Male

DRUGS (7)
  1. COSOPT [Concomitant]
     Active Substance: DORZOLAMIDE HYDROCHLORIDE\TIMOLOL MALEATE
     Dosage: 1-0-1
     Route: 065
  2. VEMURAFENIB [Suspect]
     Active Substance: VEMURAFENIB
     Indication: MALIGNANT MELANOMA
     Route: 048
     Dates: start: 20160304
  3. MILURIT [Concomitant]
     Active Substance: ALLOPURINOL
     Route: 065
  4. LORADUR MITE [Concomitant]
     Dosage: 1/2-0-0
     Route: 065
  5. EUTHYROX [Concomitant]
     Active Substance: LEVOTHYROXINE SODIUM
     Dosage: 1-0-0
     Route: 065
  6. ISOPTIN SR [Concomitant]
     Active Substance: VERAPAMIL HYDROCHLORIDE
     Dosage: 98 X 2 MG, 1-0-0
     Route: 065
  7. SORTIS [Concomitant]
     Active Substance: ATORVASTATIN
     Dosage: 100 X 10 MG, 1-0-0
     Route: 065

REACTIONS (1)
  - Cardiac failure [Fatal]
